FAERS Safety Report 10681082 (Version 2)
Quarter: 2015Q1

REPORT INFORMATION
  Report Type: Spontaneous
  Country: GB (occurrence: GB)
  Receive Date: 20141229
  Receipt Date: 20150121
  Transmission Date: 20150720
  Serious: Yes (Death, Other)
  Sender: FDA-Public Use
  Company Number: GB-009507513-1412GBR011985

PATIENT
  Age: 76 Year
  Sex: Male
  Weight: 64.6 kg

DRUGS (8)
  1. LAXIDO [Concomitant]
     Active Substance: POLYETHYLENE GLYCOL 3350\POTASSIUM CHLORIDE\SODIUM BICARBONATE\SODIUM CHLORIDE
  2. ACETAMINOPHEN (+) DIHYDROCODEINE BITARTRATE [Concomitant]
  3. GTN [Concomitant]
     Active Substance: NITROGLYCERIN
  4. LORAZEPAM. [Concomitant]
     Active Substance: LORAZEPAM
  5. NYSTATIN. [Concomitant]
     Active Substance: NYSTATIN
  6. MIRTAZAPINE. [Suspect]
     Active Substance: MIRTAZAPINE
     Dates: start: 20141211, end: 20141212
  7. AMOXICILLIN (+) CLAVULANATE POTASSIUM [Concomitant]
     Active Substance: AMOXICILLIN\CLAVULANATE POTASSIUM
  8. RANITIDINE [Concomitant]
     Active Substance: RANITIDINE\RANITIDINE HYDROCHLORIDE

REACTIONS (1)
  - Completed suicide [Fatal]
